FAERS Safety Report 20854294 (Version 1)
Quarter: 2022Q2

REPORT INFORMATION
  Report Type: Spontaneous
  Country: US (occurrence: None)
  Receive Date: 20220519
  Receipt Date: 20220519
  Transmission Date: 20220720
  Serious: No
  Sender: FDA-Public Use
  Company Number: None

PATIENT
  Sex: Female

DRUGS (1)
  1. GLATIRAMER ACETATE [Suspect]
     Active Substance: GLATIRAMER ACETATE
     Indication: Multiple sclerosis
     Dosage: FREQUENCY : 3 TIMES A WEEK;?
     Route: 058
     Dates: start: 20220330

REACTIONS (8)
  - Drug ineffective [None]
  - Lower respiratory tract infection [None]
  - Cough [None]
  - Dysphonia [None]
  - Hemiparesis [None]
  - Mobility decreased [None]
  - Product substitution issue [None]
  - Therapy cessation [None]
